FAERS Safety Report 8233982-0 (Version None)
Quarter: 2012Q1

REPORT INFORMATION
  Report Type: 
  Country: None (occurrence: None)
  Receive Date: 20120323
  Receipt Date: 20120323
  Transmission Date: 20120608
  Serious: Yes (Hospitalization)
  Sender: FDA-Public Use
  Company Number: None

PATIENT
  Sex: Male
  Weight: 61.6 kg

DRUGS (9)
  1. BEVACIZUMAB (RHUMAB VEGF) [Suspect]
     Dosage: 907 MG
  2. DEXAMETHASONE [Concomitant]
  3. FLUOXETINE [Concomitant]
  4. PEMETREXED [Suspect]
     Dosage: 900 MG
  5. PERCOCET [Concomitant]
  6. REMERON [Concomitant]
  7. FOLIC ACID [Concomitant]
  8. PHENARGAN [Concomitant]
  9. ONDANSETRON [Concomitant]

REACTIONS (1)
  - PNEUMONIA [None]
